FAERS Safety Report 23552011 (Version 2)
Quarter: 2024Q4

REPORT INFORMATION
  Report Type: Spontaneous
  Country: US (occurrence: US)
  Receive Date: 20240222
  Receipt Date: 20241128
  Transmission Date: 20250115
  Serious: No
  Sender: VIIV
  Company Number: US-ViiV Healthcare Limited-107829

PATIENT
  Age: 58 Year
  Sex: Male
  Weight: 58.05 kg

DRUGS (3)
  1. RUKOBIA [Suspect]
     Active Substance: FOSTEMSAVIR TROMETHAMINE
     Indication: Product used for unknown indication
     Dosage: UNK
     Dates: start: 20230821, end: 20231221
  2. ZIDOVUDINE [Suspect]
     Active Substance: ZIDOVUDINE
     Indication: Product used for unknown indication
     Dosage: UNK
  3. ISENTRESS [Suspect]
     Active Substance: RALTEGRAVIR POTASSIUM
     Indication: Product used for unknown indication
     Dosage: UNK

REACTIONS (2)
  - Vomiting [Recovered/Resolved]
  - Nausea [Unknown]

NARRATIVE: CASE EVENT DATE: 20230821
